FAERS Safety Report 18193555 (Version 1)
Quarter: 2020Q3

REPORT INFORMATION
  Report Type: Spontaneous
  Country: FR (occurrence: FR)
  Receive Date: 20200825
  Receipt Date: 20200825
  Transmission Date: 20201103
  Serious: Yes (Hospitalization)
  Sender: FDA-Public Use
  Company Number: FR-PFIZER INC-2020325254

PATIENT
  Age: 15 Year
  Sex: Female

DRUGS (2)
  1. XANAX [Suspect]
     Active Substance: ALPRAZOLAM
     Dosage: UNK
     Route: 048
  2. SOLUPRED [PREDNISOLONE METASULFOBENZOATE SODIUM] [Suspect]
     Active Substance: PREDNISOLONE SODIUM METAZOATE
     Dosage: UNK
     Route: 048

REACTIONS (4)
  - Poisoning [Recovered/Resolved]
  - Off label use [Unknown]
  - Somnolence [Recovered/Resolved]
  - Product use issue [Unknown]
